FAERS Safety Report 7700149-1 (Version None)
Quarter: 2011Q3

REPORT INFORMATION
  Report Type: 
  Country: None (occurrence: None)
  Receive Date: 20110822
  Receipt Date: 20110819
  Transmission Date: 20111222
  Serious: No
  Sender: FDA-Public Use
  Company Number: US-PFIZER INC-2011192698

PATIENT
  Sex: Female
  Weight: 71.655 kg

DRUGS (10)
  1. FUROSEMIDE [Concomitant]
     Indication: RENAL FAILURE
     Dosage: 40 MG, 2X/DAY
     Route: 048
  2. GABAPENTIN [Concomitant]
     Indication: NEURALGIA
     Dosage: 100 MG, 2X/DAY
     Route: 048
  3. GABAPENTIN [Concomitant]
     Indication: NERVE INJURY
  4. VITAMIN B6 [Concomitant]
     Indication: NEURALGIA
     Dosage: 500 MG, DAILY
     Route: 048
  5. LYRICA [Suspect]
     Indication: NEUROPATHY PERIPHERAL
     Dosage: 25 MG, DAILY
     Route: 048
     Dates: start: 20110810, end: 20110814
  6. LYRICA [Suspect]
     Indication: OBSTRUCTION
     Dosage: UNK, DAILY
     Route: 048
     Dates: end: 20110814
  7. GLYBURIDE [Concomitant]
     Indication: DIABETES MELLITUS
     Dosage: HALF A TABLET OF 2.5MG TWO TIMES A DAY
     Route: 048
  8. LYRICA [Suspect]
     Indication: PAIN IN EXTREMITY
  9. ICAPS [Concomitant]
     Indication: MACULAR DEGENERATION
     Dosage: UNK
     Route: 048
  10. VITAMIN B6 [Concomitant]
     Indication: NERVE INJURY

REACTIONS (2)
  - OEDEMA PERIPHERAL [None]
  - WRONG TECHNIQUE IN DRUG USAGE PROCESS [None]
